FAERS Safety Report 8961575 (Version 2)
Quarter: 2012Q4

REPORT INFORMATION
  Report Type: 
  Country: JP (occurrence: JP)
  Receive Date: 20121213
  Receipt Date: 20121226
  Transmission Date: 20130627
  Serious: Yes (Death, Other)
  Sender: FDA-Public Use
  Company Number: PHHY2012JP114210

PATIENT

DRUGS (4)
  1. NEORAL [Suspect]
     Indication: APLASTIC ANAEMIA
  2. IMMUNOGLOBULIN HUMAN NORMAL [Suspect]
     Indication: APLASTIC ANAEMIA
  3. PREDNISOLONE [Concomitant]
     Indication: APLASTIC ANAEMIA
  4. GRANULOCYTE COLONY STIMULATING FACTOR [Concomitant]
     Indication: APLASTIC ANAEMIA

REACTIONS (5)
  - Multi-organ failure [Fatal]
  - Renal failure [Fatal]
  - Hepatic function abnormal [Fatal]
  - Respiratory failure [Fatal]
  - Post transplant lymphoproliferative disorder [Unknown]
